FAERS Safety Report 11141892 (Version 2)
Quarter: 2015Q2

REPORT INFORMATION
  Report Type: Spontaneous
  Country: US (occurrence: US)
  Receive Date: 20150527
  Receipt Date: 20150625
  Transmission Date: 20150821
  Serious: Yes (Other)
  Sender: FDA-Public Use
  Company Number: US-BAYER-2015-273489

PATIENT
  Age: 67 Year
  Sex: Male

DRUGS (1)
  1. FINACEA [Suspect]
     Active Substance: AZELAIC ACID
     Indication: ROSACEA
     Dosage: UNK, QD
     Route: 061
     Dates: start: 20150123

REACTIONS (5)
  - Basal cell carcinoma [None]
  - Skin neoplasm bleeding [None]
  - Incorrect drug administration duration [None]
  - Actinic keratosis [None]
  - Acne [None]
